FAERS Safety Report 4644047-9 (Version None)
Quarter: 2005Q2

REPORT INFORMATION
  Report Type: 
  Country: None (occurrence: None)
  Receive Date: 20050425
  Receipt Date: 20041224
  Transmission Date: 20051028
  Serious: Yes (Other)
  Sender: FDA-Public Use
  Company Number: US-ROCHE-390954

PATIENT
  Age: 48 Year
  Sex: Male
  Weight: 85.3 kg

DRUGS (2)
  1. PEGASYS [Suspect]
     Indication: HEPATITIS C
     Dosage: DOSAGE REGIMEN REPORTED AS 'WEEK'
     Route: 058
     Dates: start: 20041126, end: 20041223
  2. RIBAVIRIN [Concomitant]
     Indication: HEPATITIS C
     Dosage: DOSAGE REGIMEN REPORTED AS DAILY
     Route: 048
     Dates: start: 20041126, end: 20041223

REACTIONS (2)
  - PILONIDAL CYST [None]
  - SUBCUTANEOUS ABSCESS [None]
